FAERS Safety Report 21080301 (Version 2)
Quarter: 2023Q4

REPORT INFORMATION
  Report Type: Spontaneous
  Country: PR (occurrence: PR)
  Receive Date: 20220714
  Receipt Date: 20231113
  Transmission Date: 20240110
  Serious: No
  Sender: FDA-Public Use
  Company Number: PR-BIOGEN-2022BI01139049

PATIENT
  Age: 52 Year
  Sex: Female
  Weight: 75.818 kg

DRUGS (2)
  1. TECFIDERA [Suspect]
     Active Substance: DIMETHYL FUMARATE
     Indication: Multiple sclerosis
     Route: 050
     Dates: start: 20220615
  2. TECFIDERA [Suspect]
     Active Substance: DIMETHYL FUMARATE
     Route: 050
     Dates: start: 20230921, end: 202309

REACTIONS (5)
  - Chest discomfort [Unknown]
  - Anxiety [Unknown]
  - Depression [Unknown]
  - Multiple sclerosis [Unknown]
  - Abdominal pain upper [Unknown]

NARRATIVE: CASE EVENT DATE: 20220601
